FAERS Safety Report 21532109 (Version 1)
Quarter: 2022Q4

REPORT INFORMATION
  Report Type: Report from Study
  Country: US (occurrence: US)
  Receive Date: 20221101
  Receipt Date: 20221101
  Transmission Date: 20230112
  Serious: Yes (Other)
  Sender: FDA-Public Use
  Company Number: US-KOREA IPSEN Pharma-2022-29382

PATIENT
  Age: 50 Year
  Sex: Female

DRUGS (1)
  1. SOMATULINE DEPOT [Suspect]
     Active Substance: LANREOTIDE ACETATE
     Indication: Acromegaly
     Dosage: 120 MG EVERY 28 DAYS, IN BUTTOCKS
     Route: 058
     Dates: start: 201605

REACTIONS (1)
  - Diabetes mellitus [Recovering/Resolving]
